FAERS Safety Report 19693622 (Version 8)
Quarter: 2025Q3

REPORT INFORMATION
  Report Type: Report from Study
  Country: EU (occurrence: EU)
  Receive Date: 20210812
  Receipt Date: 20250912
  Transmission Date: 20251021
  Serious: Yes (Other)
  Sender: TAKEDA
  Company Number: EU-TAKEDA-2021TUS040842

PATIENT
  Age: 63 Year
  Sex: Female
  Weight: 53 kg

DRUGS (17)
  1. TEDUGLUTIDE [Suspect]
     Active Substance: TEDUGLUTIDE
     Indication: Short-bowel syndrome
     Dosage: 2.5 MILLIGRAM, QD
     Dates: start: 20210131, end: 20210301
  2. TEDUGLUTIDE [Suspect]
     Active Substance: TEDUGLUTIDE
     Dosage: 1.8 MILLIGRAM, QD
     Dates: start: 20210302
  3. TEDUGLUTIDE [Suspect]
     Active Substance: TEDUGLUTIDE
  4. TEDUGLUTIDE [Suspect]
     Active Substance: TEDUGLUTIDE
  5. CHOLECALCIFEROL [Concomitant]
     Active Substance: CHOLECALCIFEROL
     Indication: Osteopenia
     Dosage: 100000 INTERNATIONAL UNIT, Q3MONTHS
  6. Folina [Concomitant]
     Indication: Nutritional supplementation
     Dosage: UNK, QOD
     Dates: start: 20191022
  7. ZINC SULFATE [Concomitant]
     Active Substance: ZINC SULFATE
     Indication: Nutritional supplementation
     Dosage: 200 MILLIGRAM, QD
  8. FLAGYL [Concomitant]
     Active Substance: METRONIDAZOLE\METRONIDAZOLE HYDROCHLORIDE
     Indication: Gastrointestinal disorder prophylaxis
     Dosage: UNK, TID
     Dates: start: 2021
  9. ASTRAZENECA COVID-19 VACCINE [Concomitant]
     Active Substance: AZD-1222
     Indication: COVID-19
     Dosage: 200 MILLIGRAM, QD
  10. ASTRAZENECA COVID-19 VACCINE [Concomitant]
     Active Substance: AZD-1222
  11. CIPROFLOXACIN [Concomitant]
     Active Substance: CIPROFLOXACIN
     Indication: Device related sepsis
     Dosage: UNK UNK, BID
     Dates: start: 20221029, end: 20221104
  12. RIFAXIMIN [Concomitant]
     Active Substance: RIFAXIMIN
     Dates: start: 20221111, end: 20221122
  13. Niferex [Concomitant]
     Dosage: UNK UNK, QD
     Dates: start: 202211, end: 20221122
  14. PAROXETINE [Concomitant]
     Active Substance: PAROXETINE
     Indication: Depression
     Dosage: UNK UNK, BID
  15. TAUROLIDINE [Concomitant]
     Active Substance: TAUROLIDINE
     Indication: Vascular device infection
     Dosage: UNK UNK, QD
     Dates: start: 20221122
  16. LOPERAMIDE [Concomitant]
     Active Substance: LOPERAMIDE
     Indication: Nutritional supplementation
     Dosage: UNK UNK, TID
     Dates: start: 202101
  17. Cacit [Concomitant]
     Indication: Nutritional supplementation
     Dosage: UNK UNK, BID
     Dates: start: 20231003

REACTIONS (8)
  - Impaired gastric emptying [Recovered/Resolved]
  - Biliary dilatation [Not Recovered/Not Resolved]
  - Early satiety [Recovered/Resolved]
  - Lipase increased [Not Recovered/Not Resolved]
  - Retching [Recovered/Resolved]
  - Stoma site discharge [Recovered/Resolved]
  - Gastrointestinal stoma output increased [Recovered/Resolved]
  - Vomiting [Recovered/Resolved]

NARRATIVE: CASE EVENT DATE: 20210101
